FAERS Safety Report 8058340-3 (Version None)
Quarter: 2012Q1

REPORT INFORMATION
  Report Type: 
  Country: None (occurrence: None)
  Receive Date: 20120120
  Receipt Date: 20120111
  Transmission Date: 20120608
  Serious: Yes (Life-Threatening)
  Sender: FDA-Public Use
  Company Number: JP-JNJFOC-20120104683

PATIENT
  Age: 61 Year
  Sex: Female
  Weight: 61 kg

DRUGS (6)
  1. REMICADE [Suspect]
     Route: 042
     Dates: start: 20040601
  2. METHOTREXATE [Suspect]
     Route: 048
     Dates: start: 19990101
  3. REMICADE [Suspect]
     Route: 042
     Dates: start: 20091005
  4. REMICADE [Suspect]
     Route: 042
     Dates: start: 20091130
  5. REMICADE [Suspect]
     Indication: RHEUMATOID ARTHRITIS
     Dosage: 41ST INFUSION
     Route: 042
     Dates: start: 20111128
  6. METHOTREXATE [Suspect]
     Indication: PRODUCT USED FOR UNKNOWN INDICATION
     Route: 048
     Dates: start: 20100101, end: 20111227

REACTIONS (1)
  - LYMPHOMA [None]
